FAERS Safety Report 5098703-1 (Version None)
Quarter: 2006Q3

REPORT INFORMATION
  Report Type: 
  Country: None (occurrence: None)
  Receive Date: 20060907
  Receipt Date: 20060404
  Transmission Date: 20061208
  Serious: Yes (Hospitalization)
  Sender: FDA-Public Use
  Company Number: 2006SE01957

PATIENT
  Age: 63 Year
  Sex: Male
  Weight: 71 kg

DRUGS (8)
  1. BLOPRESS TABLETS 4 [Suspect]
     Indication: HYPERTENSION
     Route: 048
     Dates: start: 20040206, end: 20060201
  2. BENZALIN [Suspect]
     Indication: INSOMNIA
     Route: 048
     Dates: end: 20060131
  3. BENZALIN [Suspect]
     Route: 048
     Dates: start: 20060201, end: 20060302
  4. BENZALIN [Suspect]
     Route: 048
     Dates: start: 20060303, end: 20060419
  5. TAKEPRON [Concomitant]
     Indication: REFLUX OESOPHAGITIS
     Route: 048
  6. AMLODIN [Concomitant]
     Indication: HYPERTENSION
     Route: 048
  7. KREMEZIN [Concomitant]
     Indication: RENAL FAILURE CHRONIC
     Route: 048
  8. FRANDOL TAPE-S [Concomitant]
     Indication: ANGINA PECTORIS
     Route: 062

REACTIONS (1)
  - RHABDOMYOLYSIS [None]
